FAERS Safety Report 7300015-X (Version None)
Quarter: 2011Q1

REPORT INFORMATION
  Report Type: 
  Country: None (occurrence: None)
  Receive Date: 20110217
  Receipt Date: 20110215
  Transmission Date: 20110831
  Serious: Yes (Other)
  Sender: FDA-Public Use
  Company Number: IT-PFIZER INC-2011027778

PATIENT
  Age: 23 Year
  Sex: Female

DRUGS (1)
  1. IBUPROFEN [Suspect]
     Dosage: 1 DOSAGE UNIT, TOTAL DOSE
     Route: 048
     Dates: start: 20110206, end: 20110206

REACTIONS (3)
  - PRURITUS GENERALISED [None]
  - LIP OEDEMA [None]
  - DYSPNOEA [None]
